FAERS Safety Report 14303794 (Version 1)
Quarter: 2017Q4

REPORT INFORMATION
  Report Type: Spontaneous
  Country: DK (occurrence: DK)
  Receive Date: 20171219
  Receipt Date: 20171219
  Transmission Date: 20180321
  Serious: Yes (Disabling, Other)
  Sender: FDA-Public Use
  Company Number: DK-OTSUKA-EU-2014-10101

PATIENT
  Age: 53 Year
  Sex: Male

DRUGS (1)
  1. ABILIFY [Suspect]
     Active Substance: ARIPIPRAZOLE
     Indication: SCHIZOAFFECTIVE DISORDER DEPRESSIVE TYPE
     Dosage: DOSIS: UKENDT
     Route: 048
     Dates: start: 20070614, end: 20090818

REACTIONS (3)
  - Parkinson^s disease [Not Recovered/Not Resolved]
  - Dyskinesia [Not Recovered/Not Resolved]
  - Psoriasis [Not Recovered/Not Resolved]

NARRATIVE: CASE EVENT DATE: 20070614
